FAERS Safety Report 6280794-3 (Version None)
Quarter: 2009Q3

REPORT INFORMATION
  Report Type: 
  Country: None (occurrence: None)
  Receive Date: 20090724
  Receipt Date: 20090130
  Transmission Date: 20100115
  Serious: No
  Sender: FDA-Public Use
  Company Number: A0766746A

PATIENT
  Sex: Male
  Weight: 90.9 kg

DRUGS (2)
  1. AVANDIA [Suspect]
     Dosage: 8MG TWICE PER DAY
     Route: 065
     Dates: start: 19950101, end: 20050201
  2. ACTOS [Concomitant]
     Dates: start: 19950101

REACTIONS (1)
  - ADVERSE EVENT [None]
